FAERS Safety Report 9736707 (Version 1)
Quarter: 2013Q4

REPORT INFORMATION
  Report Type: Spontaneous
  Country: US (occurrence: US)
  Receive Date: 20131206
  Receipt Date: 20131206
  Transmission Date: 20140711
  Serious: No
  Sender: FDA-Public Use
  Company Number: US-GILEAD-2009-0023616

PATIENT
  Sex: Female
  Weight: 53.52 kg

DRUGS (13)
  1. LETAIRIS [Suspect]
     Indication: PULMONARY ARTERIAL HYPERTENSION
     Route: 048
     Dates: start: 20080922, end: 20090611
  2. CIPRO [Concomitant]
  3. SINGULAIR [Concomitant]
  4. PREDNISONE [Concomitant]
  5. LISINOPRIL [Concomitant]
  6. DILTIAZEM [Concomitant]
  7. DIGITEK [Concomitant]
  8. ZETIA [Concomitant]
  9. LORAZEPAM [Concomitant]
  10. CLONAZEPAM [Concomitant]
  11. NEXIUM [Concomitant]
  12. FOLIC ACID [Concomitant]
  13. MULTIVITAMINS [Concomitant]

REACTIONS (1)
  - Drug ineffective [Unknown]
